FAERS Safety Report 4394896-X (Version None)
Quarter: 2004Q3

REPORT INFORMATION
  Report Type: 
  Country: None (occurrence: None)
  Receive Date: 20040706
  Receipt Date: 20040623
  Transmission Date: 20050211
  Serious: Yes (Hospitalization)
  Sender: FDA-Public Use
  Company Number: 2004016409

PATIENT
  Age: 23 Year
  Sex: Female
  Weight: 52 kg

DRUGS (15)
  1. VIAGRA [Suspect]
     Indication: PULMONARY HYPERTENSION
     Dosage: 45 MG (14 MG, 3 IN 1 D), ORAL
     Route: 048
     Dates: start: 20031218
  2. CLONAZEPAM [Concomitant]
  3. VALPROATE SODIUM [Concomitant]
  4. FERROUS CITRATE [Concomitant]
  5. SPIRONOLACTONE [Concomitant]
  6. FUROSEMIDE [Concomitant]
  7. LANSOPRAZOLE [Concomitant]
  8. REBAMIPIDE (REBAMIPIDE) [Concomitant]
  9. BERIZYM (ENZYMES NOS) [Concomitant]
  10. METOCLOPRAMIDE [Concomitant]
  11. EPERISONE HYDROCHLORIDE (EPERISONE HYDROCHLORIDE) [Concomitant]
  12. LACTOBACILLUS BIFIDUS, LYOPHILIZED (LACTOBACILLUS BIFIDUS, LYOPHILIZED [Concomitant]
  13. WARFARIN (WARFARIN) [Concomitant]
  14. EPOPROSTENOL SODIUM (EPOPROSTENOL SODIUM) [Concomitant]
  15. PIMOBENDAN (PIMOBENDAN) [Concomitant]

REACTIONS (8)
  - BLEPHAROSPASM [None]
  - CONVULSION [None]
  - DEPRESSED LEVEL OF CONSCIOUSNESS [None]
  - EPILEPSY [None]
  - FALL [None]
  - LOSS OF CONSCIOUSNESS [None]
  - STATUS EPILEPTICUS [None]
  - TREMOR [None]
